FAERS Safety Report 5015433-2 (Version None)
Quarter: 2006Q2

REPORT INFORMATION
  Report Type: 
  Country: None (occurrence: None)
  Receive Date: 20060601
  Receipt Date: 20050914
  Transmission Date: 20061013
  Serious: Yes (Death, Other)
  Sender: FDA-Public Use
  Company Number: PHBS2005CA13655

PATIENT
  Age: 33 Year

DRUGS (1)
  1. CLOZARIL [Suspect]
     Route: 048

REACTIONS (5)
  - CARDIAC VALVE DISEASE [None]
  - DEATH [None]
  - ECCHYMOSIS [None]
  - PYREXIA [None]
  - WHITE BLOOD CELL COUNT DECREASED [None]
